FAERS Safety Report 8758601 (Version 3)
Quarter: 2013Q2

REPORT INFORMATION
  Report Type: Report from Study
  Country: JP (occurrence: JP)
  Receive Date: 20120829
  Receipt Date: 20130408
  Transmission Date: 20140414
  Serious: Yes (Other)
  Sender: FDA-Public Use
  Company Number: JP-VERTEX PHARMACEUTICAL INC.-AE-2012-004559

PATIENT
  Age: 51 Year
  Sex: Male

DRUGS (6)
  1. VX-950 (TELAPREVIR) [Suspect]
     Indication: CHRONIC HEPATITIS C
     Dosage: 2250 MG, QD
     Route: 048
     Dates: start: 20120210, end: 20120307
  2. VX-950 (TELAPREVIR) [Suspect]
     Dosage: 1500 MG, QD
     Route: 048
     Dates: start: 20120308, end: 20120323
  3. PEGINTRON [Suspect]
     Indication: CHRONIC HEPATITIS C
     Dosage: 1.5 ?G/KG, QW
     Route: 058
     Dates: start: 20120210, end: 20120316
  4. REBETOL [Concomitant]
     Dosage: 800 MG, QD
     Route: 048
     Dates: start: 20120210, end: 20120323
  5. ALOSITOL [Concomitant]
     Dosage: 300 MG, QD
     Route: 048
  6. MYSLEE [Concomitant]
     Dosage: 5 MG, QD
     Route: 048
     Dates: start: 20120211

REACTIONS (1)
  - Interstitial lung disease [Recovered/Resolved]
